FAERS Safety Report 6312080-7 (Version None)
Quarter: 2009Q3

REPORT INFORMATION
  Report Type: 
  Country: None (occurrence: None)
  Receive Date: 20090813
  Receipt Date: 20090813
  Transmission Date: 20100115
  Serious: Yes (Death)
  Sender: FDA-Public Use
  Company Number: None

PATIENT
  Sex: Male

DRUGS (6)
  1. REVLIMID [Suspect]
     Indication: CHRONIC LYMPHOCYTIC LEUKAEMIA
     Dosage: 10MG DAILY ORALLY
     Route: 048
     Dates: start: 20081001
  2. ACYCLOVIR [Concomitant]
  3. M.V.I. [Concomitant]
  4. VICODIN [Concomitant]
  5. FLONASE [Concomitant]
  6. (MULTIPLE REGIMENS FOR NHL AND CLL) [Concomitant]

REACTIONS (1)
  - PNEUMONIA [None]
